FAERS Safety Report 8218005 (Version 2)
Quarter: 2013Q3

REPORT INFORMATION
  Report Type: Spontaneous
  Country: NL (occurrence: NL)
  Receive Date: 20111101
  Receipt Date: 20130903
  Transmission Date: 20140515
  Serious: Yes (Life-Threatening, Other)
  Sender: FDA-Public Use
  Company Number: NL-ROCHE-1007766

PATIENT
  Age: 57 Year
  Sex: Female

DRUGS (1)
  1. CEFTRIAXONE [Suspect]
     Indication: LYME DISEASE
     Route: 042
     Dates: start: 20110917, end: 20110923

REACTIONS (2)
  - Haemolytic anaemia [Recovered/Resolved with Sequelae]
  - Hepatitis [Recovering/Resolving]
